FAERS Safety Report 5258947-2 (Version None)
Quarter: 2007Q1

REPORT INFORMATION
  Report Type: 
  Country: None (occurrence: None)
  Receive Date: 20061217
  Receipt Date: 20051115
  Transmission Date: 20070707
  Serious: Yes (Disabling)
  Sender: FDA-Public Use
  Company Number: US-JNJFOC-20051104094

PATIENT
  Age: 68 Year
  Sex: Female

DRUGS (2)
  1. LEVAQUIN [Suspect]
     Indication: SINUSITIS
     Dosage: ORAL
     Route: 048
     Dates: start: 20050418
  2. NASAL SPRAY NOS (NASAL DECONGESTANTS FOR SYSTEMIC USE) [Concomitant]

REACTIONS (1)
  - PAIN [None]
